FAERS Safety Report 12781460 (Version 1)
Quarter: 2016Q3

REPORT INFORMATION
  Report Type: Spontaneous
  Country: US (occurrence: US)
  Receive Date: 20160926
  Receipt Date: 20160926
  Transmission Date: 20161109
  Serious: No
  Sender: FDA-Public Use
  Company Number: US-PFIZER INC-3204870

PATIENT
  Sex: Female
  Weight: 86.18 kg

DRUGS (9)
  1. DIAZEPAM. [Suspect]
     Active Substance: DIAZEPAM
     Indication: ANXIETY
     Dosage: 10 MG, FREQ: 3 DAY; INTERVAL: 1
     Dates: end: 20140101
  2. DULOXETINE. [Concomitant]
     Active Substance: DULOXETINE
     Indication: ANXIETY
     Dosage: 60 MG, UNK
     Route: 048
     Dates: start: 20140701
  3. VENLAFAXINE [Concomitant]
     Active Substance: VENLAFAXINE HYDROCHLORIDE
     Indication: OBSESSIVE-COMPULSIVE DISORDER
     Dosage: 150 MG, 2 YEARS, FREQ: 1 DAY; INTERVAL: 1
  4. DULOXETINE. [Concomitant]
     Active Substance: DULOXETINE
     Indication: DEPRESSION
  5. DULOXETINE. [Concomitant]
     Active Substance: DULOXETINE
     Indication: OBSESSIVE-COMPULSIVE DISORDER
  6. DULOXETINE. [Concomitant]
     Active Substance: DULOXETINE
     Indication: INTENTIONAL SELF-INJURY
  7. DULOXETINE. [Concomitant]
     Active Substance: DULOXETINE
     Indication: POST-TRAUMATIC STRESS DISORDER
  8. TEMAZEPAM. [Concomitant]
     Active Substance: TEMAZEPAM
     Indication: SLEEP DISORDER THERAPY
     Dosage: 30 MG, AT BEDTIME
     Route: 048
  9. VENLAFAXINE [Concomitant]
     Active Substance: VENLAFAXINE HYDROCHLORIDE
     Indication: POST-TRAUMATIC STRESS DISORDER

REACTIONS (1)
  - Drug ineffective [Unknown]
